FAERS Safety Report 5850928-0 (Version None)
Quarter: 2008Q3

REPORT INFORMATION
  Report Type: 
  Country: None (occurrence: None)
  Receive Date: 20080820
  Receipt Date: 20080812
  Transmission Date: 20090109
  Serious: Yes (Hospitalization, Other)
  Sender: FDA-Public Use
  Company Number: PHEH2008US07093

PATIENT
  Sex: Male

DRUGS (7)
  1. ELIDEL [Suspect]
     Indication: ECZEMA
     Dosage: UNK
     Route: 061
     Dates: start: 20040614
  2. PROTOPIC [Suspect]
     Indication: ECZEMA
     Dosage: 0.3%
     Route: 061
     Dates: start: 20040801
  3. KEFLEX [Concomitant]
     Indication: RASH
     Dosage: 125/5MG
     Dates: start: 20040711
  4. LOCOID [Concomitant]
     Indication: DERMATITIS ATOPIC
     Dosage: UNK
     Route: 061
     Dates: start: 20040827
  5. LOCOID [Concomitant]
     Dosage: UNK
     Dates: start: 20050701
  6. AQUAPHOR                                /USA/ [Concomitant]
     Indication: DERMATITIS ATOPIC
  7. ALLEGRA [Concomitant]
     Indication: RHINITIS ALLERGIC

REACTIONS (18)
  - BIOPSY LYMPH GLAND [None]
  - CHEMOTHERAPY [None]
  - COUGH [None]
  - DECREASED APPETITE [None]
  - DERMATITIS DIAPER [None]
  - DIARRHOEA [None]
  - FEBRILE CONVULSION [None]
  - LESION EXCISION [None]
  - MALIGNANT MELANOMA [None]
  - PAIN [None]
  - PAIN IN EXTREMITY [None]
  - PYREXIA [None]
  - RASH [None]
  - SLEEP DISORDER [None]
  - TESTICULAR RETRACTION [None]
  - UPPER RESPIRATORY TRACT INFECTION [None]
  - VARICELLA [None]
  - XANTHOGRANULOMA [None]
